FAERS Safety Report 7957198-8 (Version None)
Quarter: 2011Q4

REPORT INFORMATION
  Report Type: 
  Country: None (occurrence: None)
  Receive Date: 20111205
  Receipt Date: 20111128
  Transmission Date: 20120403
  Serious: Yes (Hospitalization)
  Sender: FDA-Public Use
  Company Number: IT-BRISTOL-MYERS SQUIBB COMPANY-16243222

PATIENT
  Age: 57 Year
  Sex: Male

DRUGS (5)
  1. FLECAINIDE ACETATE [Concomitant]
     Dosage: 1 DF = 1 UNITM
  2. LEXOTAN [Concomitant]
  3. ENALAPRIL MALEATE [Concomitant]
  4. ALFUZOSIN HCL [Concomitant]
     Dosage: 1DF=1 UNIT.
  5. COUMADIN [Suspect]
     Indication: ATRIAL FIBRILLATION
     Dosage: 1 DF = 1 UNIT.INTERRUPTED:11OCT2011.
     Route: 048
     Dates: start: 20101001

REACTIONS (2)
  - SUBDURAL HAEMATOMA [None]
  - IIIRD NERVE PARALYSIS [None]
